FAERS Safety Report 12101082 (Version 1)
Quarter: 2016Q1

REPORT INFORMATION
  Report Type: Spontaneous
  Country: US (occurrence: US)
  Receive Date: 20160222
  Receipt Date: 20160222
  Transmission Date: 20160526
  Serious: No
  Sender: FDA-Public Use
  Company Number: US-009507513-1602USA010049

PATIENT
  Age: 83 Year
  Sex: Male

DRUGS (3)
  1. JANUVIA [Suspect]
     Active Substance: SITAGLIPTIN PHOSPHATE
     Indication: BLOOD GLUCOSE
     Dosage: 1 TABLET DAILY
     Route: 048
     Dates: start: 20160203, end: 20160213
  2. GLYBURIDE. [Concomitant]
     Active Substance: GLYBURIDE
     Dosage: 2 X 5 MG
  3. METFORMIN [Concomitant]
     Active Substance: METFORMIN HYDROCHLORIDE
     Dosage: 2 X 505 MG

REACTIONS (3)
  - Blood glucose increased [Unknown]
  - Diarrhoea [Unknown]
  - Weight decreased [Unknown]

NARRATIVE: CASE EVENT DATE: 201602
